FAERS Safety Report 15962651 (Version 1)
Quarter: 2019Q1

REPORT INFORMATION
  Report Type: Spontaneous
  Country: ES (occurrence: ES)
  Receive Date: 20190214
  Receipt Date: 20190214
  Transmission Date: 20190417
  Serious: Yes (Other)
  Sender: FDA-Public Use
  Company Number: ES-EISAI MEDICAL RESEARCH-EC-2019-051753

PATIENT
  Age: 35 Year
  Sex: Male

DRUGS (4)
  1. FYCOMPA [Suspect]
     Active Substance: PERAMPANEL
     Indication: TEMPORAL LOBE EPILEPSY
     Route: 048
     Dates: start: 201709, end: 201901
  2. ESLICARBAZEPINE [Concomitant]
     Active Substance: ESLICARBAZEPINE
     Indication: EPILEPSY
     Dosage: UNKNOWN
     Route: 048
  3. LEVETIRACETAM. [Concomitant]
     Active Substance: LEVETIRACETAM
     Indication: EPILEPSY
     Dosage: UNKNOWN
     Route: 048
  4. VORTIOXETINE. [Concomitant]
     Active Substance: VORTIOXETINE
     Indication: DEPRESSION
     Dosage: UNKNOWN
     Route: 048

REACTIONS (1)
  - Suicide attempt [Recovered/Resolved]

NARRATIVE: CASE EVENT DATE: 20180625
